FAERS Safety Report 23712155 (Version 1)
Quarter: 2024Q2

REPORT INFORMATION
  Report Type: Spontaneous
  Country: GB (occurrence: GB)
  Receive Date: 20240405
  Receipt Date: 20240405
  Transmission Date: 20240716
  Serious: Yes (Other)
  Sender: FDA-Public Use
  Company Number: None

PATIENT
  Age: 56 Year
  Sex: Male
  Weight: 81 kg

DRUGS (8)
  1. TRIMETHOPRIM [Suspect]
     Active Substance: TRIMETHOPRIM
     Indication: Urinary tract infection
     Dosage: DURATION: 7 DAYS
     Route: 065
     Dates: start: 20240322
  2. ESOMEPRAZOLE [Concomitant]
     Active Substance: ESOMEPRAZOLE
     Dosage: DURATION: 28 DAYS
     Dates: start: 20240206, end: 20240305
  3. CETIRIZINE [Concomitant]
     Active Substance: CETIRIZINE HYDROCHLORIDE
     Dates: start: 20240325
  4. CHOLECALCIFEROL [Concomitant]
     Active Substance: CHOLECALCIFEROL
     Dosage: DURATION: 7 WEEKS
     Dates: start: 20240206
  5. ZOLPIDEM [Concomitant]
     Active Substance: ZOLPIDEM TARTRATE
     Dosage: TIME INTERVAL: AS NECESSARY: AT NIGHT WHEN REQUIRED TO HELP ..., DURATION: 7 DAYS
     Dates: start: 20240124, end: 20240131
  6. NITROFURANTOIN [Concomitant]
     Active Substance: NITROFURANTOIN
     Dosage: TO TRE..., DURATION: 7 DAYS
     Dates: start: 20240325
  7. HYDROCORTISONE [Concomitant]
     Active Substance: HYDROCORTISONE
     Dosage: APPLY TO THE AFFECTED AREA
     Dates: start: 20240325
  8. CYANOCOBALAMIN [Concomitant]
     Active Substance: CYANOCOBALAMIN
     Dates: start: 20240206

REACTIONS (2)
  - Throat tightness [Unknown]
  - Rash pruritic [Recovered/Resolved]
